FAERS Safety Report 6207220-4 (Version None)
Quarter: 2009Q2

REPORT INFORMATION
  Report Type: 
  Country: None (occurrence: None)
  Receive Date: 20090528
  Receipt Date: 20090520
  Transmission Date: 20091009
  Serious: Yes (Hospitalization, Other)
  Sender: FDA-Public Use
  Company Number: PHHY2009CA01092

PATIENT
  Sex: Male

DRUGS (8)
  1. EXELON [Suspect]
     Indication: DEMENTIA WITH LEWY BODIES
     Dosage: 6 MG AM, 3 MG PM, 3 MG HS
     Route: 048
     Dates: end: 20090107
  2. ZOCOR [Concomitant]
     Dosage: 20 MG, QHS
  3. DIAMICRON [Concomitant]
     Dosage: 0.5 DF, QD
  4. ASPIRIN [Concomitant]
     Dosage: 1 DF, BID
  5. VITAMIN D [Concomitant]
     Dosage: 1FS/SEM
  6. CALCIUM [Concomitant]
     Dosage: 1 DF, BID
  7. FOSAMAX [Concomitant]
     Dosage: 1 DF, 1 FS/SEM
  8. GLUCOPHAGE [Concomitant]
     Dosage: 1 DF, LE MIDI

REACTIONS (6)
  - CONVULSION [None]
  - LOSS OF CONSCIOUSNESS [None]
  - MUSCLE CONTRACTIONS INVOLUNTARY [None]
  - MUSCLE RIGIDITY [None]
  - PETIT MAL EPILEPSY [None]
  - STATUS EPILEPTICUS [None]
